FAERS Safety Report 12898232 (Version 1)
Quarter: 2016Q4

REPORT INFORMATION
  Report Type: Spontaneous
  Country: US (occurrence: US)
  Receive Date: 20161031
  Receipt Date: 20161031
  Transmission Date: 20170207
  Serious: No
  Sender: FDA-Public Use
  Company Number: US-AKRIMAX-TIR-2016-1060

PATIENT
  Age: 63 Year
  Sex: Female
  Weight: 56.75 kg

DRUGS (2)
  1. TIROSINT [Suspect]
     Active Substance: LEVOTHYROXINE SODIUM
     Indication: THYROIDECTOMY
     Dosage: ONCE DAILY
     Route: 048
     Dates: start: 2011, end: 201608
  2. TIROSINT [Suspect]
     Active Substance: LEVOTHYROXINE SODIUM
     Dosage: ONE CAPSULE DAILY MONDAY THROUGH FRIDAY
     Route: 048
     Dates: start: 201608

REACTIONS (6)
  - Hepatic enzyme abnormal [Unknown]
  - Diarrhoea [Unknown]
  - Aphasia [Unknown]
  - Night sweats [Unknown]
  - Irritability [Unknown]
  - Anxiety [Unknown]
